FAERS Safety Report 23391398 (Version 1)
Quarter: 2024Q1

REPORT INFORMATION
  Report Type: Spontaneous
  Country: CZ (occurrence: CZ)
  Receive Date: 20240111
  Receipt Date: 20240111
  Transmission Date: 20240409
  Serious: Yes (Other)
  Sender: FDA-Public Use
  Company Number: CZ-002147023-NVSC2023CZ270062

PATIENT
  Age: 4 Year
  Sex: Female
  Weight: 20 kg

DRUGS (1)
  1. CANAKINUMAB [Suspect]
     Active Substance: CANAKINUMAB
     Indication: Still^s disease
     Dosage: 4 MG/KG, Q4W
     Route: 058
     Dates: start: 201402, end: 201406

REACTIONS (7)
  - Polyarthritis [Unknown]
  - Arthritis reactive [Unknown]
  - Drug ineffective [Recovering/Resolving]
  - Biliary neoplasm [Unknown]
  - Pyrexia [Unknown]
  - Hepatomegaly [Unknown]
  - Infection [Unknown]

NARRATIVE: CASE EVENT DATE: 20140201
